FAERS Safety Report 24657943 (Version 1)
Quarter: 2024Q4

REPORT INFORMATION
  Report Type: Spontaneous
  Country: US (occurrence: US)
  Receive Date: 20241125
  Receipt Date: 20241125
  Transmission Date: 20250115
  Serious: Yes (Other)
  Sender: SANOFI AVENTIS
  Company Number: US-SANOFI-02310014

PATIENT
  Sex: Male

DRUGS (3)
  1. LANTUS SOLOSTAR [Suspect]
     Active Substance: INSULIN GLARGINE
     Indication: Type 2 diabetes mellitus
     Dosage: 12 IU, QD
     Route: 065
     Dates: start: 202409
  2. HUMALOG [Concomitant]
     Active Substance: INSULIN LISPRO
  3. GLUCAGON [Concomitant]
     Active Substance: GLUCAGON

REACTIONS (4)
  - Loss of consciousness [Unknown]
  - Illness [Unknown]
  - Blood glucose decreased [Unknown]
  - Blood glucose increased [Unknown]
